FAERS Safety Report 7531019-X (Version None)
Quarter: 2011Q2

REPORT INFORMATION
  Report Type: 
  Country: None (occurrence: None)
  Receive Date: 20110608
  Receipt Date: 20110527
  Transmission Date: 20111010
  Serious: Yes (Hospitalization)
  Sender: FDA-Public Use
  Company Number: JP-JNJFOC-20110600320

PATIENT
  Age: 75 Year
  Sex: Female

DRUGS (3)
  1. CANDESARTAN CILEXETIL [Concomitant]
     Indication: HYPERTENSION
     Route: 048
     Dates: start: 20110220
  2. STELARA [Suspect]
     Indication: PSORIASIS
     Route: 058
     Dates: start: 20110511
  3. NEORAL [Suspect]
     Indication: PSORIASIS
     Route: 048
     Dates: start: 20110401, end: 20110506

REACTIONS (3)
  - HYPERTENSION [None]
  - DIZZINESS [None]
  - PUSTULAR PSORIASIS [None]
